FAERS Safety Report 5798332-8 (Version None)
Quarter: 2008Q2

REPORT INFORMATION
  Report Type: 
  Country: None (occurrence: None)
  Receive Date: 20080630
  Receipt Date: 20080613
  Transmission Date: 20081010
  Serious: Yes (Other)
  Sender: FDA-Public Use
  Company Number: 8033808

PATIENT
  Sex: Male

DRUGS (2)
  1. KEPPRA [Suspect]
     Indication: CONVULSION
     Dosage: 48 MG/KG/D
  2. VALPROATE SODIUM [Concomitant]

REACTIONS (5)
  - AGITATION [None]
  - CRYING [None]
  - MALAISE [None]
  - RASH [None]
  - THROMBOCYTOPENIA [None]
